FAERS Safety Report 16906452 (Version 1)
Quarter: 2019Q4

REPORT INFORMATION
  Report Type: Other
  Country: GB (occurrence: GB)
  Receive Date: 20191011
  Receipt Date: 20191011
  Transmission Date: 20200122
  Serious: No
  Sender: FDA-Public Use
  Company Number: GB-LUPIN PHARMACEUTICALS INC.-2019-02161

PATIENT
  Age: 92 Year
  Sex: Female
  Weight: 87 kg

DRUGS (1)
  1. CEFALEXIN 250 MG CAPSULES [Suspect]
     Active Substance: CEPHALEXIN
     Indication: CELLULITIS
     Dosage: 250 MILLIGRAM, QID
     Route: 048
     Dates: start: 20180928, end: 20181005

REACTIONS (2)
  - Drug hypersensitivity [Recovered/Resolved]
  - Tongue discomfort [Recovered/Resolved]

NARRATIVE: CASE EVENT DATE: 20181004
